FAERS Safety Report 8420618-9 (Version None)
Quarter: 2012Q2

REPORT INFORMATION
  Report Type: 
  Country: None (occurrence: None)
  Receive Date: 20120608
  Receipt Date: 20120531
  Transmission Date: 20120825
  Serious: No
  Sender: FDA-Public Use
  Company Number: US-BIOGENIDEC-2012BI019338

PATIENT
  Sex: Female

DRUGS (3)
  1. TYSABRI [Suspect]
     Indication: MULTIPLE SCLEROSIS
     Route: 042
     Dates: start: 20050211, end: 20050211
  2. PAROXETINE [Concomitant]
     Indication: DEPRESSION
  3. TYSABRI [Suspect]
     Route: 042
     Dates: start: 20061130

REACTIONS (5)
  - MICTURITION URGENCY [None]
  - ABASIA [None]
  - APHASIA [None]
  - DEFAECATION URGENCY [None]
  - MOBILITY DECREASED [None]
